FAERS Safety Report 10057988 (Version 1)
Quarter: 2014Q2

REPORT INFORMATION
  Report Type: Spontaneous
  Country: GB (occurrence: None)
  Receive Date: 20140402
  Receipt Date: 20140402
  Transmission Date: 20141212
  Serious: Yes (Hospitalization)
  Sender: FDA-Public Use
  Company Number: 2014PL000045

PATIENT
  Age: 43 Year
  Sex: Female
  Weight: 64 kg

DRUGS (2)
  1. LOTRONEX [Suspect]
     Indication: IRRITABLE BOWEL SYNDROME
     Dates: start: 201309
  2. LOTRONEX [Suspect]
     Indication: DIARRHOEA
     Dates: start: 201309

REACTIONS (4)
  - Faecaloma [None]
  - Abdominal pain [None]
  - Gastrointestinal pain [None]
  - Aphagia [None]
